FAERS Safety Report 4680318-8 (Version None)
Quarter: 2005Q2

REPORT INFORMATION
  Report Type: 
  Country: None (occurrence: None)
  Receive Date: 20050602
  Receipt Date: 20050523
  Transmission Date: 20051028
  Serious: Yes (Death)
  Sender: FDA-Public Use
  Company Number: US-ABBOTT-05P-163-0301173-00

PATIENT
  Age: 50 Year
  Sex: Male

DRUGS (5)
  1. VALPROIC ACID [Suspect]
     Indication: DEVELOPMENTAL DELAY
     Dosage: NOT REPORTED
  2. VALPROIC ACID [Suspect]
     Indication: LENNOX-GASTAUT SYNDROME
  3. PHENYTOIN [Concomitant]
     Indication: DEVELOPMENTAL DELAY
     Dosage: NOT REPORTED
  4. PHENYTOIN [Concomitant]
     Indication: LENNOX-GASTAUT SYNDROME
  5. CARBAMAZEPINE [Concomitant]
     Indication: DRUG USE FOR UNKNOWN INDICATION
     Dosage: NOT REPORTED

REACTIONS (3)
  - ACUTE MYELOID LEUKAEMIA [None]
  - CELLULITIS [None]
  - PYREXIA [None]
